FAERS Safety Report 10016386 (Version 2)
Quarter: 2014Q1

REPORT INFORMATION
  Report Type: Spontaneous
  Country: JP (occurrence: JP)
  Receive Date: 20140317
  Receipt Date: 20140321
  Transmission Date: 20141002
  Serious: No
  Sender: FDA-Public Use
  Company Number: JP-PFIZER INC-2014072293

PATIENT
  Age: 36 Year
  Sex: Female

DRUGS (11)
  1. PREMARIN [Suspect]
     Dosage: 1 DF, DAILY
     Route: 048
  2. PREDONINE [Concomitant]
     Dosage: 200 MG, UNK
     Route: 042
     Dates: start: 20140306
  3. PREDONINE [Concomitant]
     Dosage: 140 MG, UNK
     Route: 042
     Dates: start: 20140308
  4. PREDONINE [Concomitant]
     Dosage: 100 MG, UNK
     Route: 042
  5. EBASTINE [Concomitant]
     Dosage: 5 MG, 1X/DAY
     Route: 048
  6. PLANOVAR [Concomitant]
     Dosage: 1 DF, 1X/DAY
     Route: 048
  7. PULMICORT [Concomitant]
     Dosage: UNK
     Route: 055
  8. SPIRIVA [Concomitant]
     Dosage: UNK
     Route: 055
  9. RHYTHMY [Concomitant]
     Dosage: 2 MG, 1X/DAY
     Route: 048
  10. WYPAX [Concomitant]
     Dosage: 0.5 MG, AS NEEDED
     Route: 048
  11. SEROQUEL [Concomitant]
     Dosage: UNK
     Route: 048

REACTIONS (1)
  - Polymenorrhoea [Unknown]
